FAERS Safety Report 6185808-7 (Version None)
Quarter: 2009Q2

REPORT INFORMATION
  Report Type: 
  Country: None (occurrence: None)
  Receive Date: 20090511
  Receipt Date: 20090501
  Transmission Date: 20091009
  Serious: Yes (Hospitalization)
  Sender: FDA-Public Use
  Company Number: A0731273A

PATIENT
  Age: 46 Year
  Sex: Male
  Weight: 120.9 kg

DRUGS (1)
  1. AVANDIA [Suspect]
     Dosage: 4MG PER DAY
     Route: 048
     Dates: start: 20020622, end: 20030701

REACTIONS (3)
  - INJURY [None]
  - MYOCARDIAL INFARCTION [None]
  - PAIN [None]
